FAERS Safety Report 6956875-5 (Version None)
Quarter: 2010Q3

REPORT INFORMATION
  Report Type: 
  Country: None (occurrence: None)
  Receive Date: 20100826
  Receipt Date: 20100821
  Transmission Date: 20110219
  Serious: Yes (Death)
  Sender: FDA-Public Use
  Company Number: 1000015879

PATIENT
  Age: 78 Year
  Sex: Male

DRUGS (1)
  1. CELEXA [Suspect]
     Dates: start: 20080425, end: 20080430

REACTIONS (4)
  - AGGRESSION [None]
  - COMPLETED SUICIDE [None]
  - DEPRESSED MOOD [None]
  - HOMICIDE [None]
